FAERS Safety Report 13422688 (Version 4)
Quarter: 2017Q3

REPORT INFORMATION
  Report Type: Spontaneous
  Country: KR (occurrence: KR)
  Receive Date: 20170410
  Receipt Date: 20170802
  Transmission Date: 20171127
  Serious: Yes (Hospitalization)
  Sender: FDA-Public Use
  Company Number: KR-009507513-1609KOR005126

PATIENT
  Age: 73 Year
  Sex: Male
  Weight: 71 kg

DRUGS (63)
  1. EMEND (FOSAPREPITANT DIMEGLUMINE) [Suspect]
     Active Substance: FOSAPREPITANT DIMEGLUMINE
     Dosage: 150 MG, ONCE
     Route: 042
     Dates: start: 20160722, end: 20160722
  2. ENDOXAN [Concomitant]
     Active Substance: CYCLOPHOSPHAMIDE
     Dosage: 1335 MG, ONCE, CYCLE 2
     Route: 042
     Dates: start: 20160610, end: 20160610
  3. ENDOXAN [Concomitant]
     Active Substance: CYCLOPHOSPHAMIDE
     Dosage: 1335 MG, ONCE, CYCLE 4
     Route: 042
     Dates: start: 20160722, end: 20160722
  4. ENDOXAN [Concomitant]
     Active Substance: CYCLOPHOSPHAMIDE
     Dosage: 1335 MG, ONCE, CYCLE 5
     Route: 042
     Dates: start: 20160812, end: 20160812
  5. DOXORUBICIN HYDROCHLORIDE. [Concomitant]
     Active Substance: DOXORUBICIN HYDROCHLORIDE
     Dosage: 70 MG, ONCE, CYCLE 2
     Route: 042
     Dates: start: 20160610, end: 20160610
  6. DOXORUBICIN HYDROCHLORIDE. [Concomitant]
     Active Substance: DOXORUBICIN HYDROCHLORIDE
     Dosage: 70 MG, ONCE, CYCLE 5
     Route: 042
     Dates: start: 20160812, end: 20160812
  7. VINCRISTINE SULFATE. [Concomitant]
     Active Substance: VINCRISTINE SULFATE
     Dosage: 2 MG, ONCE, CYCLE 2
     Route: 042
     Dates: start: 20160610, end: 20160610
  8. MABTHERA [Concomitant]
     Active Substance: RITUXIMAB
     Dosage: 680 MG, ONCE, CYCLE 3
     Route: 042
     Dates: start: 20160630, end: 20160630
  9. MABTHERA [Concomitant]
     Active Substance: RITUXIMAB
     Dosage: 680 MG, ONCE, CYCLE 5
     Route: 042
     Dates: start: 20160812, end: 20160812
  10. ALOXI [Concomitant]
     Active Substance: PALONOSETRON HYDROCHLORIDE
     Dosage: 5 ML, ONCE
     Route: 042
     Dates: start: 20160902, end: 20160902
  11. BEECOM [Concomitant]
     Indication: PROPHYLAXIS
     Dosage: 1 TABLET, QD
     Route: 048
     Dates: start: 20160512, end: 20160518
  12. EMEND (FOSAPREPITANT DIMEGLUMINE) [Suspect]
     Active Substance: FOSAPREPITANT DIMEGLUMINE
     Dosage: 150 MG, ONCE
     Route: 042
     Dates: start: 20160812, end: 20160812
  13. ENDOXAN [Concomitant]
     Active Substance: CYCLOPHOSPHAMIDE
     Dosage: 1280 MG, ONCE, CYCLE 6
     Route: 042
     Dates: start: 20160902, end: 20160902
  14. VINCRISTINE SULFATE. [Concomitant]
     Active Substance: VINCRISTINE SULFATE
     Indication: DIFFUSE LARGE B-CELL LYMPHOMA
     Dosage: 1.5 MG, ONCE, CYCLE 1
     Route: 042
     Dates: start: 20160521, end: 20160521
  15. VINCRISTINE SULFATE. [Concomitant]
     Active Substance: VINCRISTINE SULFATE
     Dosage: 2 MG, ONCE, CYCLE 4
     Route: 042
     Dates: start: 20160722, end: 20160722
  16. VINCRISTINE SULFATE. [Concomitant]
     Active Substance: VINCRISTINE SULFATE
     Dosage: 2 MG, ONCE, CYCLE 5
     Route: 042
     Dates: start: 20160812, end: 20160812
  17. ALOXI [Concomitant]
     Active Substance: PALONOSETRON HYDROCHLORIDE
     Indication: PREMEDICATION
     Dosage: 5 ML, ONCE
     Route: 042
     Dates: start: 20160521, end: 20160521
  18. ALOXI [Concomitant]
     Active Substance: PALONOSETRON HYDROCHLORIDE
     Dosage: 5 ML, ONCE
     Route: 042
     Dates: start: 20160610, end: 20160610
  19. ALOXI [Concomitant]
     Active Substance: PALONOSETRON HYDROCHLORIDE
     Dosage: 5 ML, ONCE
     Route: 042
     Dates: start: 20160630, end: 20160630
  20. ADIPAM [Concomitant]
     Indication: NEURODERMATITIS
     Dosage: 10 MG, QD
     Route: 048
     Dates: start: 201602, end: 20160613
  21. FOLIC ACID. [Concomitant]
     Active Substance: FOLIC ACID
     Indication: PROPHYLAXIS
     Dosage: 1 MG, QD
     Route: 048
     Dates: start: 201602, end: 20160613
  22. PLETAAL [Concomitant]
     Active Substance: CILOSTAZOL
     Indication: CEREBROVASCULAR ACCIDENT PROPHYLAXIS
     Dosage: 100 MG, QD
     Route: 048
     Dates: start: 20160512, end: 20160901
  23. REMERON SOLTAB [Concomitant]
     Active Substance: MIRTAZAPINE
     Indication: DEPRESSION
     Dosage: 15 MG (1 TABLET), QD
     Route: 048
     Dates: start: 20160503, end: 20160519
  24. SENSIVAL [Concomitant]
     Indication: DEPRESSION
     Dosage: 1 TABLET (10 MG), QD
     Route: 048
     Dates: start: 20160512, end: 20160519
  25. EMEND (FOSAPREPITANT DIMEGLUMINE) [Suspect]
     Active Substance: FOSAPREPITANT DIMEGLUMINE
     Dosage: 150 MG, ONCE
     Route: 042
     Dates: start: 20160630, end: 20160630
  26. ENDOXAN [Concomitant]
     Active Substance: CYCLOPHOSPHAMIDE
     Dosage: 1335 MG, ONCE, CYCLE 3
     Route: 042
     Dates: start: 20160630, end: 20160630
  27. DOXORUBICIN HYDROCHLORIDE. [Concomitant]
     Active Substance: DOXORUBICIN HYDROCHLORIDE
     Dosage: 65 MG, ONCE, CYCLE 6
     Route: 042
     Dates: start: 20160902, end: 20160902
  28. MABTHERA [Concomitant]
     Active Substance: RITUXIMAB
     Dosage: 680 MG, ONCE, CYCLE 2
     Route: 042
     Dates: start: 20160610, end: 20160610
  29. MABTHERA [Concomitant]
     Active Substance: RITUXIMAB
     Dosage: 680 MG, ONCE, CYCLE 4
     Route: 042
     Dates: start: 20160722, end: 20160722
  30. ALOXI [Concomitant]
     Active Substance: PALONOSETRON HYDROCHLORIDE
     Dosage: 5 ML, ONCE
     Route: 042
     Dates: start: 20160812, end: 20160812
  31. JANUVIA [Concomitant]
     Active Substance: SITAGLIPTIN PHOSPHATE
     Indication: DIABETES MELLITUS
     Dosage: 50 MG, QD
     Route: 048
     Dates: start: 20160517, end: 20160606
  32. DICHLODIDE [Concomitant]
     Indication: HYPERTENSION
     Dosage: 1 TABLET (25 MG), QD
     Route: 048
     Dates: start: 20160512, end: 20160518
  33. LIPITOR [Concomitant]
     Active Substance: ATORVASTATIN CALCIUM
     Indication: HYPERTENSION
     Dosage: 5 MG, QD
     Route: 048
     Dates: start: 20160512, end: 20160518
  34. NEULASTA [Concomitant]
     Active Substance: PEGFILGRASTIM
     Indication: PROPHYLAXIS
     Dosage: 6 MG, ONCE
     Route: 058
     Dates: start: 20160523, end: 20160523
  35. NEULASTA [Concomitant]
     Active Substance: PEGFILGRASTIM
     Dosage: 6 MG, QD (ALSO REPORTED AS ^AFTER EVERY CHEMOTHERAPY^)
     Route: 058
     Dates: start: 20160611, end: 20160902
  36. DOXORUBICIN HYDROCHLORIDE. [Concomitant]
     Active Substance: DOXORUBICIN HYDROCHLORIDE
     Dosage: 70 MG, ONCE, CYCLE 4
     Route: 042
     Dates: start: 20160722, end: 20160722
  37. SOLONDO [Concomitant]
     Active Substance: PREDNISOLONE
     Indication: PREMEDICATION
     Dosage: 40 MG FOR MORNING AND 30 MG FOR LUNCH AND DINNER TIME
     Route: 048
     Dates: start: 20160521, end: 20160525
  38. SOLONDO [Concomitant]
     Active Substance: PREDNISOLONE
     Dosage: 40 MG FOR MORNING AND 30 MG FOR LUNCH AND DINNER TIME
     Route: 048
     Dates: start: 20160722, end: 20160722
  39. ALOXI [Concomitant]
     Active Substance: PALONOSETRON HYDROCHLORIDE
     Dosage: 5 ML, ONCE
     Route: 042
     Dates: start: 20160722, end: 20160722
  40. TACENOL [Concomitant]
     Indication: PROPHYLAXIS
     Dosage: 650 MG, QD; ON AND OFF AS REQUIRED
     Route: 048
     Dates: start: 20160521, end: 20160824
  41. EMEND (FOSAPREPITANT DIMEGLUMINE) [Suspect]
     Active Substance: FOSAPREPITANT DIMEGLUMINE
     Dosage: 150 MG, ONCE
     Route: 042
     Dates: start: 20160610, end: 20160610
  42. VINCRISTINE SULFATE. [Concomitant]
     Active Substance: VINCRISTINE SULFATE
     Dosage: 2 MG, ONCE, CYCLE 6
     Route: 042
     Dates: start: 20160902, end: 20160902
  43. SOLONDO [Concomitant]
     Active Substance: PREDNISOLONE
     Dosage: 40 MG FOR MORNING AND 30 MG FOR LUNCH AND DINNER TIME
     Route: 048
     Dates: start: 20160812, end: 20160812
  44. SOLONDO [Concomitant]
     Active Substance: PREDNISOLONE
     Dosage: 40 MG FOR MORNING AND 30 MG FOR LUNCH AND DINNER TIME
     Route: 048
     Dates: start: 20160902, end: 20160902
  45. TELMITREND [Concomitant]
     Indication: HYPERTENSION
     Dosage: 40 MG, QD
     Route: 048
     Dates: start: 20160514, end: 20160901
  46. LODIEN [Concomitant]
     Indication: HYPERTENSION
     Dosage: 2.5 MG, QD
     Route: 048
     Dates: start: 20160514, end: 20160715
  47. DOXORUBICIN HYDROCHLORIDE. [Concomitant]
     Active Substance: DOXORUBICIN HYDROCHLORIDE
     Indication: DIFFUSE LARGE B-CELL LYMPHOMA
     Dosage: 70 MG, ONCE, CYCLE 1
     Route: 042
     Dates: start: 20160521, end: 20160521
  48. VINCRISTINE SULFATE. [Concomitant]
     Active Substance: VINCRISTINE SULFATE
     Dosage: 2 MG, ONCE, CYCLE 3
     Route: 042
     Dates: start: 20160630, end: 20160630
  49. SOLONDO [Concomitant]
     Active Substance: PREDNISOLONE
     Dosage: 40 MG FOR MORNING AND 30 MG FOR LUNCH AND DINNER TIME
     Route: 048
     Dates: start: 20160630, end: 20160630
  50. FAMOTIDINE. [Concomitant]
     Active Substance: FAMOTIDINE
     Indication: PAIN PROPHYLAXIS
     Dosage: 20 MG, BID
     Route: 048
     Dates: start: 20160521, end: 20160906
  51. GLIATILIN [Concomitant]
     Active Substance: CHOLINE ALFOSCERATE
     Indication: CEREBROVASCULAR ACCIDENT PROPHYLAXIS
     Dosage: 400 MG, QD
     Route: 048
     Dates: start: 20160519
  52. CIPOL N [Concomitant]
     Indication: NEURODERMATITIS
     Dosage: 2 CAPSULES (50 MG), BID
     Dates: start: 201602, end: 20160519
  53. EFEXOR [Concomitant]
     Active Substance: VENLAFAXINE HYDROCHLORIDE
     Indication: DEPRESSION
     Dosage: 1 CAPSULE (37.5 MG), QD
     Route: 048
     Dates: start: 20160519, end: 20160519
  54. EMEND (FOSAPREPITANT DIMEGLUMINE) [Suspect]
     Active Substance: FOSAPREPITANT DIMEGLUMINE
     Indication: PROPHYLAXIS OF NAUSEA AND VOMITING
     Dosage: 150 MG, ONCE
     Route: 042
     Dates: start: 20160521, end: 20160521
  55. ENDOXAN [Concomitant]
     Active Substance: CYCLOPHOSPHAMIDE
     Indication: DIFFUSE LARGE B-CELL LYMPHOMA
     Dosage: 1020 MG, ONCE, CYCLE 1
     Route: 042
     Dates: start: 20160521, end: 20160521
  56. MABTHERA [Concomitant]
     Active Substance: RITUXIMAB
     Dosage: 640 MG, ONCE, CYCLE 6
     Route: 042
     Dates: start: 20160902, end: 20160902
  57. MONILAC [Concomitant]
     Active Substance: LACTULOSE
     Indication: CONSTIPATION PROPHYLAXIS
     Dosage: 20 ML, TID
     Route: 048
     Dates: start: 20160521, end: 20160827
  58. EMEND (FOSAPREPITANT DIMEGLUMINE) [Suspect]
     Active Substance: FOSAPREPITANT DIMEGLUMINE
     Dosage: 150 MG, ONCE
     Route: 042
     Dates: start: 20160902, end: 20160902
  59. DOXORUBICIN HYDROCHLORIDE. [Concomitant]
     Active Substance: DOXORUBICIN HYDROCHLORIDE
     Dosage: 70 MG, ONCE, CYCLE 3
     Route: 042
     Dates: start: 20160630, end: 20160630
  60. MABTHERA [Concomitant]
     Active Substance: RITUXIMAB
     Indication: DIFFUSE LARGE B-CELL LYMPHOMA
     Dosage: 680 MG, ONCE, CYCLE 1
     Route: 042
     Dates: start: 20160521, end: 20160521
  61. SOLONDO [Concomitant]
     Active Substance: PREDNISOLONE
     Dosage: 40 MG FOR MORNING AND 30 MG FOR LUNCH AND DINNER TIME
     Route: 048
     Dates: start: 20160610, end: 20160610
  62. CHLORPHENIRAMINE MALEATE. [Concomitant]
     Active Substance: CHLORPHENIRAMINE MALEATE
     Indication: PREMEDICATION
     Dosage: 4 MG, QD
     Route: 042
     Dates: start: 20160521, end: 20160902
  63. LEXAPRO [Concomitant]
     Active Substance: ESCITALOPRAM OXALATE
     Indication: DEPRESSION
     Dosage: 10 MG, QD
     Route: 048
     Dates: start: 20160520, end: 20160531

REACTIONS (4)
  - Hyponatraemia [Recovered/Resolved]
  - Pyrexia [Recovered/Resolved]
  - Pyrexia [Recovered/Resolved]
  - Nausea [Recovered/Resolved]

NARRATIVE: CASE EVENT DATE: 20160527
